FAERS Safety Report 22073234 (Version 1)
Quarter: 2023Q1

REPORT INFORMATION
  Report Type: Spontaneous
  Country: AT (occurrence: AT)
  Receive Date: 20230308
  Receipt Date: 20230308
  Transmission Date: 20230417
  Serious: Yes (Hospitalization, Other)
  Sender: FDA-Public Use
  Company Number: AT-ALKEM LABORATORIES LIMITED-IT-ALKEM-2023-02462

PATIENT
  Age: 63 Year
  Sex: Male

DRUGS (19)
  1. OLANZAPINE [Suspect]
     Active Substance: OLANZAPINE
     Indication: Schizophrenia
     Dosage: 25 MILLIGRAM, QD
     Route: 065
  2. OLANZAPINE [Suspect]
     Active Substance: OLANZAPINE
     Dosage: 10 MILLIGRAM, QD
     Route: 065
  3. OLANZAPINE [Suspect]
     Active Substance: OLANZAPINE
     Dosage: 20 MG/DAY, QD
     Route: 065
  4. OLANZAPINE [Suspect]
     Active Substance: OLANZAPINE
     Dosage: 25 MILLIGRAM, QD
     Route: 065
  5. OLANZAPINE [Suspect]
     Active Substance: OLANZAPINE
     Dosage: UNK, GRADUALLY TAPERED
     Route: 065
  6. PREGABALIN [Interacting]
     Active Substance: PREGABALIN
     Indication: Product used for unknown indication
     Dosage: UNK, UP TO 300 MG/DAY
     Route: 065
  7. QUETIAPINE FUMARATE [Suspect]
     Active Substance: QUETIAPINE FUMARATE
     Indication: Schizophrenia
     Dosage: 1000 MG/DAY
     Route: 065
  8. QUETIAPINE FUMARATE [Suspect]
     Active Substance: QUETIAPINE FUMARATE
     Dosage: 1000 MG/DAY (MONOTHERAPY)
     Route: 065
  9. QUETIAPINE FUMARATE [Suspect]
     Active Substance: QUETIAPINE FUMARATE
     Dosage: 800 MG/DAY, EXTENDED RELEASE
     Route: 065
  10. QUETIAPINE FUMARATE [Suspect]
     Active Substance: QUETIAPINE FUMARATE
     Dosage: 800 MG/DAY, EXTENDED RELEASE
     Route: 065
  11. CLOZAPINE [Suspect]
     Active Substance: CLOZAPINE
     Indication: Schizophrenia
     Dosage: 300 MILLIGRAM, QD
     Route: 065
  12. CLOZAPINE [Suspect]
     Active Substance: CLOZAPINE
     Dosage: 50 MILLIGRAM, QD
     Route: 065
  13. CLOZAPINE [Suspect]
     Active Substance: CLOZAPINE
     Dosage: 200 MG/DAY, QD
     Route: 065
  14. CLOZAPINE [Suspect]
     Active Substance: CLOZAPINE
     Dosage: 50 MILLIGRAM
     Route: 065
  15. CLOZAPINE [Suspect]
     Active Substance: CLOZAPINE
     Dosage: 150 MG/DAY
     Route: 065
  16. LORAZEPAM [Interacting]
     Active Substance: LORAZEPAM
     Indication: Product used for unknown indication
     Dosage: 3 MG/DAY
     Route: 065
  17. LORAZEPAM [Interacting]
     Active Substance: LORAZEPAM
     Dosage: 2 MG/DAY
     Route: 065
  18. LORAZEPAM [Interacting]
     Active Substance: LORAZEPAM
     Dosage: 3 MG/DAY
     Route: 065
  19. LORAZEPAM [Interacting]
     Active Substance: LORAZEPAM
     Dosage: 2 MG/DAY
     Route: 065

REACTIONS (12)
  - Pulmonary embolism [Recovering/Resolving]
  - Pulmonary thrombosis [Recovering/Resolving]
  - Pericardial effusion [Unknown]
  - Pneumonia aspiration [Unknown]
  - Drug interaction [Unknown]
  - Psychotic symptom [Recovering/Resolving]
  - Salivary hypersecretion [Unknown]
  - Sedation [Unknown]
  - Adverse event [Unknown]
  - Weight increased [Unknown]
  - Disease recurrence [Unknown]
  - Therapy non-responder [Unknown]
